FAERS Safety Report 9691620 (Version 1)
Quarter: 2013Q4

REPORT INFORMATION
  Report Type: Spontaneous
  Country: DE (occurrence: DE)
  Receive Date: 20131115
  Receipt Date: 20131115
  Transmission Date: 20140711
  Serious: Yes (Other)
  Sender: FDA-Public Use
  Company Number: DE-BAXTER-2013BAX044881

PATIENT
  Sex: 0

DRUGS (2)
  1. TISSUCOL DUO 500 [Suspect]
     Indication: CARDIAC OPERATION
     Route: 065
  2. TISSUCOL DUO 500 [Suspect]
     Indication: OFF LABEL USE

REACTIONS (1)
  - Vasospasm [Unknown]
